FAERS Safety Report 4984568-2 (Version None)
Quarter: 2006Q2

REPORT INFORMATION
  Report Type: 
  Country: None (occurrence: None)
  Receive Date: 20060421
  Receipt Date: 20060418
  Transmission Date: 20061013
  Serious: Yes (Hospitalization)
  Sender: FDA-Public Use
  Company Number: 060406-0000324

PATIENT
  Age: 34 Year
  Sex: Male
  Weight: 70 kg

DRUGS (4)
  1. COSMEGEN [Suspect]
     Indication: NEOPLASM MALIGNANT
     Dosage: 0.5 MG; QD; IV
     Route: 042
     Dates: start: 20060307, end: 20060309
  2. VINCRISTINE SULFATE [Suspect]
     Indication: NEOPLASM MALIGNANT
     Dosage: 1.8 MG, QD; IV
     Route: 042
     Dates: start: 20060307, end: 20060307
  3. IFOSFAMIDE [Suspect]
     Indication: NEOPLASM MALIGNANT
     Dosage: 3.7 GM, QD; IV
     Route: 042
     Dates: start: 20060307, end: 20060311
  4. DOXORUBICIN HYDROCHLORIDE [Suspect]
     Indication: NEOPLASM MALIGNANT
     Dosage: 37 MG, QD; IV
     Route: 042
     Dates: start: 20060307, end: 20060309

REACTIONS (2)
  - NEUTROPENIA [None]
  - WHITE BLOOD CELL COUNT DECREASED [None]
